FAERS Safety Report 17688112 (Version 9)
Quarter: 2021Q1

REPORT INFORMATION
  Report Type: Report from Study
  Country: US (occurrence: US)
  Receive Date: 20200421
  Receipt Date: 20210331
  Transmission Date: 20210419
  Serious: Yes (Other)
  Sender: FDA-Public Use
  Company Number: US-KYOWAKIRIN-2020BKK006012

PATIENT

DRUGS (9)
  1. LISINOPRIL. [Concomitant]
     Active Substance: LISINOPRIL
     Indication: PRODUCT USED FOR UNKNOWN INDICATION
     Dosage: UNK
     Route: 065
  2. PANTOPRAZOLE [Concomitant]
     Active Substance: PANTOPRAZOLE
     Indication: PRODUCT USED FOR UNKNOWN INDICATION
     Dosage: UNK
     Route: 065
  3. TERCONAZOLE. [Concomitant]
     Active Substance: TERCONAZOLE
     Indication: PRODUCT USED FOR UNKNOWN INDICATION
     Dosage: UNK
     Route: 065
  4. SYNTHROID [Concomitant]
     Active Substance: LEVOTHYROXINE SODIUM
     Indication: PRODUCT USED FOR UNKNOWN INDICATION
     Dosage: UNK
     Route: 065
  5. ERYTHROMYCIN. [Concomitant]
     Active Substance: ERYTHROMYCIN
     Indication: PRODUCT USED FOR UNKNOWN INDICATION
     Dosage: UNK
     Route: 065
  6. TRIAMCINOLONE [Concomitant]
     Active Substance: TRIAMCINOLONE
     Indication: PRODUCT USED FOR UNKNOWN INDICATION
     Dosage: UNK
     Route: 065
  7. POTELIGEO [Suspect]
     Active Substance: MOGAMULIZUMAB-KPKC
     Dosage: 1 MG/KG, Q 28 D (ONCE MONTHLY)
     Route: 042
     Dates: start: 20201118
  8. CLOBETASOL [Concomitant]
     Active Substance: CLOBETASOL
     Indication: PRODUCT USED FOR UNKNOWN INDICATION
     Dosage: UNK
     Route: 065
  9. POTELIGEO [Suspect]
     Active Substance: MOGAMULIZUMAB-KPKC
     Indication: CUTANEOUS T-CELL LYMPHOMA
     Dosage: 1 MG/KG, 1X/2 WEEKS (EVERY 28 D)
     Route: 042
     Dates: start: 20190204, end: 2020

REACTIONS (13)
  - Psoriasis [Not Recovered/Not Resolved]
  - Lip dry [Recovering/Resolving]
  - Ear swelling [Unknown]
  - Oropharyngeal discomfort [Not Recovered/Not Resolved]
  - COVID-19 [Unknown]
  - Pyrexia [Unknown]
  - Syncope [Unknown]
  - Exposure to SARS-CoV-2 [Unknown]
  - Ear disorder [Unknown]
  - Inappropriate schedule of product administration [Not Recovered/Not Resolved]
  - Cough [Not Recovered/Not Resolved]
  - Drug eruption [Not Recovered/Not Resolved]
  - Immune system disorder [Recovered/Resolved]

NARRATIVE: CASE EVENT DATE: 20190304
